FAERS Safety Report 6081515-X (Version None)
Quarter: 2009Q1

REPORT INFORMATION
  Report Type: 
  Country: None (occurrence: None)
  Receive Date: 20090213
  Receipt Date: 20090202
  Transmission Date: 20090719
  Serious: Yes (Disabling, Other)
  Sender: FDA-Public Use
  Company Number: 2008AP003568

PATIENT

DRUGS (2)
  1. LAMOTRIGINE [Suspect]
     Dosage: QD, TRPL
     Route: 064
  2. FOLIC ACID [Concomitant]

REACTIONS (2)
  - ASPERGER'S DISORDER [None]
  - MATERNAL DRUGS AFFECTING FOETUS [None]
